FAERS Safety Report 7874630 (Version 5)
Quarter: 2014Q2

REPORT INFORMATION
  Report Type: Spontaneous
  Country: US (occurrence: US)
  Receive Date: 20110328
  Receipt Date: 20140509
  Transmission Date: 20141212
  Serious: Yes (Other)
  Sender: FDA-Public Use
  Company Number: US-US-EMD SERONO, INC.-7049110

PATIENT
  Age: 23 Year
  Sex: Female
  Weight: 109 kg

DRUGS (3)
  1. REBIF [Suspect]
     Indication: RELAPSING-REMITTING MULTIPLE SCLEROSIS
     Route: 058
     Dates: start: 20100310
  2. AMANTADINE [Concomitant]
     Indication: FATIGUE
     Route: 048
     Dates: start: 20110207
  3. IBUPROFEN [Concomitant]
     Indication: PREMEDICATION

REACTIONS (4)
  - Cervical dysplasia [Not Recovered/Not Resolved]
  - Human papilloma virus test positive [Unknown]
  - Cervicitis trichomonal [Unknown]
  - Injection site swelling [Unknown]
